FAERS Safety Report 8075194-X (Version None)
Quarter: 2012Q1

REPORT INFORMATION
  Report Type: 
  Country: None (occurrence: None)
  Receive Date: 20120127
  Receipt Date: 20120124
  Transmission Date: 20120608
  Serious: No
  Sender: FDA-Public Use
  Company Number: US-PFIZER INC-2012015997

PATIENT
  Sex: Male
  Weight: 115.2 kg

DRUGS (5)
  1. NITROSTAT [Suspect]
     Indication: ANGINA PECTORIS
     Dosage: 0.3MG, UNK
     Route: 060
  2. METOPROLOL [Concomitant]
     Indication: CARDIAC DISORDER
  3. METOPROLOL [Concomitant]
     Indication: BLOOD PRESSURE ABNORMAL
     Dosage: UNK
  4. WARFARIN [Concomitant]
     Indication: ANTICOAGULANT THERAPY
     Dosage: UNK
  5. NITROSTAT [Suspect]
     Dosage: 0.4 MG, 3X/DAY
     Route: 060

REACTIONS (2)
  - PRODUCT QUALITY ISSUE [None]
  - DRUG INEFFECTIVE [None]
